FAERS Safety Report 8603216-3 (Version None)
Quarter: 2012Q3

REPORT INFORMATION
  Report Type: 
  Country: None (occurrence: None)
  Receive Date: 20120817
  Receipt Date: 20120814
  Transmission Date: 20120928
  Serious: Yes (Other)
  Sender: FDA-Public Use
  Company Number: US-ELI_LILLY_AND_COMPANY-US201208004855

PATIENT
  Sex: Male

DRUGS (11)
  1. NEXIUM [Concomitant]
     Dosage: UNK, UNKNOWN
  2. EFFIENT [Suspect]
     Indication: STENT PLACEMENT
     Dosage: 10 MG, QD
     Dates: start: 20111001
  3. METOPROLOL TARTRATE [Concomitant]
     Dosage: UNK, UNKNOWN
  4. ISOSORBIDE [Concomitant]
     Dosage: UNK, UNKNOWN
  5. ASPIRIN [Concomitant]
     Dosage: UNK, UNKNOWN
  6. GLUCOSAMINE [Concomitant]
     Dosage: UNK, UNKNOWN
  7. FISH OIL [Concomitant]
     Dosage: UNK, UNKNOWN
  8. NITROGLYCERIN [Concomitant]
     Dosage: UNK, PRN
  9. VYTORIN [Concomitant]
     Dosage: UNK, UNKNOWN
  10. NIASPAN [Concomitant]
     Dosage: UNK, UNKNOWN
  11. PERCOCET [Concomitant]
     Dosage: UNK, UNKNOWN

REACTIONS (7)
  - ARTERIAL OCCLUSIVE DISEASE [None]
  - CHEST PAIN [None]
  - HIGH DENSITY LIPOPROTEIN DECREASED [None]
  - CARDIOVASCULAR DISORDER [None]
  - INCORRECT PRODUCT STORAGE [None]
  - ARTERIAL DISORDER [None]
  - SCAR [None]
